FAERS Safety Report 26118205 (Version 1)
Quarter: 2025Q4

REPORT INFORMATION
  Report Type: Spontaneous
  Country: EU (occurrence: EU)
  Receive Date: 20251203
  Receipt Date: 20251203
  Transmission Date: 20260118
  Serious: Yes (Other)
  Sender: MYLAN
  Company Number: None

PATIENT
  Age: 47 Year
  Sex: Female
  Weight: 98 kg

DRUGS (4)
  1. PREGABALIN [Suspect]
     Active Substance: PREGABALIN
     Indication: Hernia
     Dosage: 2 DOSAGE FORM,BID,(2 CAPSULES TWICE DAILY)
     Dates: start: 20240715, end: 20250715
  2. PREGABALIN [Suspect]
     Active Substance: PREGABALIN
     Dosage: 2 DOSAGE FORM,BID,(2 CAPSULES TWICE DAILY)
     Route: 048
     Dates: start: 20240715, end: 20250715
  3. PREGABALIN [Suspect]
     Active Substance: PREGABALIN
     Dosage: 2 DOSAGE FORM,BID,(2 CAPSULES TWICE DAILY)
     Route: 048
     Dates: start: 20240715, end: 20250715
  4. PREGABALIN [Suspect]
     Active Substance: PREGABALIN
     Dosage: 2 DOSAGE FORM,BID,(2 CAPSULES TWICE DAILY)
     Dates: start: 20240715, end: 20250715

REACTIONS (1)
  - Neuropathy peripheral [Recovered/Resolved]
